FAERS Safety Report 8576045 (Version 2)
Quarter: 2012Q4

REPORT INFORMATION
  Report Type: 
  Country: JP (occurrence: JP)
  Receive Date: 20120523
  Receipt Date: 20120904
  Transmission Date: 20130627
  Serious: Yes (Other)
  Sender: FDA-Public Use
  Company Number: JP-GLAXOSMITHKLINE-B0802177A

PATIENT
  Age: 82 None
  Sex: Male

DRUGS (5)
  1. SERETIDE (50MCG/250MCG) [Suspect]
     Indication: CHRONIC OBSTRUCTIVE PULMONARY DISEASE
     Dosage: 250MCG Twice per day
     Route: 055
     Dates: start: 20120216
  2. SPIRIVA [Concomitant]
     Indication: CHRONIC OBSTRUCTIVE PULMONARY DISEASE
     Dosage: 18MCG Per day
     Route: 055
     Dates: start: 20120216
  3. FUROSEMIDE [Concomitant]
     Indication: HYPERTENSION
     Dosage: 40MG Per day
     Route: 048
     Dates: start: 20120216
  4. MUCODYNE [Concomitant]
     Indication: BRONCHITIS CHRONIC
     Dosage: 1500MG Per day
     Route: 048
     Dates: start: 20120216
  5. BLOPRESS [Concomitant]
     Indication: HYPERTENSION
     Dosage: 4MG Per day
     Route: 048
     Dates: start: 20120216

REACTIONS (2)
  - Oesophageal candidiasis [Recovering/Resolving]
  - Oropharyngeal discomfort [Unknown]
